FAERS Safety Report 4660430-X (Version None)
Quarter: 2005Q2

REPORT INFORMATION
  Report Type: 
  Country: None (occurrence: None)
  Receive Date: 20050512
  Receipt Date: 20050504
  Transmission Date: 20051028
  Serious: Yes (Hospitalization)
  Sender: FDA-Public Use
  Company Number: US-GLAXOSMITHKLINE-A0557283A

PATIENT
  Age: 57 Year
  Sex: Male

DRUGS (2)
  1. WELLBUTRIN [Suspect]
     Route: 048
     Dates: start: 20041101
  2. DILANTIN [Concomitant]

REACTIONS (3)
  - AMNESIA [None]
  - CONVULSION [None]
  - HEAD INJURY [None]
